FAERS Safety Report 9571492 (Version 2)
Quarter: 2013Q4

REPORT INFORMATION
  Report Type: Spontaneous
  Country: US (occurrence: US)
  Receive Date: 20131001
  Receipt Date: 20131010
  Transmission Date: 20140711
  Serious: No
  Sender: FDA-Public Use
  Company Number: US-PFIZER INC-2013278419

PATIENT
  Age: 26 Year
  Sex: Male
  Weight: 84.35 kg

DRUGS (1)
  1. EFFEXOR XR [Suspect]
     Indication: DEPRESSION
     Dosage: 75 MG, 1X/DAY
     Dates: start: 201305, end: 201309

REACTIONS (5)
  - Drug withdrawal syndrome [Not Recovered/Not Resolved]
  - Abnormal behaviour [Not Recovered/Not Resolved]
  - Paraesthesia [Not Recovered/Not Resolved]
  - Screaming [Not Recovered/Not Resolved]
  - Dysgeusia [Not Recovered/Not Resolved]
